FAERS Safety Report 8030065-X (Version None)
Quarter: 2012Q1

REPORT INFORMATION
  Report Type: 
  Country: None (occurrence: None)
  Receive Date: 20120109
  Receipt Date: 20120102
  Transmission Date: 20120608
  Serious: Yes (Hospitalization, Other)
  Sender: FDA-Public Use
  Company Number: FR-JNJFOC-20120100719

PATIENT
  Age: 30 Year
  Sex: Female

DRUGS (18)
  1. SEROQUEL [Suspect]
     Route: 048
     Dates: start: 20111116, end: 20111122
  2. TRIMEPRAZINE TARTRATE [Suspect]
     Indication: PRODUCT USED FOR UNKNOWN INDICATION
     Route: 048
     Dates: start: 20111020
  3. SEROQUEL [Suspect]
     Route: 048
     Dates: start: 20111115, end: 20111116
  4. DUPHALAC [Concomitant]
     Route: 065
     Dates: start: 20111106
  5. RISPERDAL [Suspect]
     Indication: PRODUCT USED FOR UNKNOWN INDICATION
     Route: 048
     Dates: start: 20110918, end: 20110921
  6. SEROQUEL [Suspect]
     Route: 048
     Dates: start: 20111020, end: 20111104
  7. TERCIAN [Suspect]
     Indication: PRODUCT USED FOR UNKNOWN INDICATION
     Route: 065
     Dates: start: 20111116
  8. ZYPREXA [Suspect]
     Indication: PRODUCT USED FOR UNKNOWN INDICATION
     Route: 065
     Dates: start: 20110920, end: 20111004
  9. SEROQUEL [Suspect]
     Route: 048
     Dates: start: 20111206, end: 20111214
  10. LAMICTAL [Concomitant]
     Route: 048
     Dates: start: 20110918
  11. SEROQUEL [Suspect]
     Route: 048
     Dates: start: 20111122, end: 20111206
  12. XANAX [Concomitant]
     Route: 065
  13. STABLON [Concomitant]
     Route: 065
     Dates: start: 20110918
  14. NORFLOXACIN [Concomitant]
     Route: 065
     Dates: start: 20111018, end: 20111021
  15. SEROQUEL [Suspect]
     Indication: PRODUCT USED FOR UNKNOWN INDICATION
     Route: 048
     Dates: start: 20111104, end: 20111105
  16. SEROQUEL [Suspect]
     Route: 048
     Dates: start: 20111105, end: 20111108
  17. SEROQUEL [Suspect]
     Route: 048
     Dates: start: 20111108, end: 20111115
  18. ACETAMINOPHEN [Concomitant]
     Route: 065
     Dates: start: 20110919

REACTIONS (1)
  - COLITIS ISCHAEMIC [None]
